FAERS Safety Report 6111612-1 (Version None)
Quarter: 2009Q1

REPORT INFORMATION
  Report Type: 
  Country: None (occurrence: None)
  Receive Date: 20090310
  Receipt Date: 20090310
  Transmission Date: 20090719
  Serious: Yes (Hospitalization)
  Sender: FDA-Public Use
  Company Number: None

PATIENT
  Sex: Male
  Weight: 115 kg

DRUGS (3)
  1. FLUOROURACIL [Suspect]
     Dosage: 6272 MG
  2. LEUCOVORIN CALCIUM [Suspect]
     Dosage: 896 MG
  3. ELOXATIN [Suspect]
     Dosage: 190 MG

REACTIONS (7)
  - ACIDOSIS [None]
  - DEHYDRATION [None]
  - DIARRHOEA [None]
  - HYPOCALCAEMIA [None]
  - HYPONATRAEMIA [None]
  - NEUTROPENIC INFECTION [None]
  - SEPTIC SHOCK [None]
